FAERS Safety Report 6200707-X (Version None)
Quarter: 2009Q2

REPORT INFORMATION
  Report Type: 
  Country: None (occurrence: None)
  Receive Date: 20090522
  Receipt Date: 20090515
  Transmission Date: 20091009
  Serious: Yes (Hospitalization, Disabling)
  Sender: FDA-Public Use
  Company Number: US-MERCK-0807USA05262

PATIENT
  Age: 72 Year
  Sex: Female

DRUGS (1)
  1. FOSAMAX [Suspect]
     Indication: OSTEOPOROSIS
     Route: 048
     Dates: start: 20010701, end: 20060801

REACTIONS (8)
  - ARTHROPATHY [None]
  - BURNING SENSATION [None]
  - CATARACT [None]
  - FAILURE OF IMPLANT [None]
  - NAUSEA [None]
  - ORAL INFECTION [None]
  - OSTEONECROSIS [None]
  - RESORPTION BONE INCREASED [None]
